FAERS Safety Report 16426185 (Version 3)
Quarter: 2019Q3

REPORT INFORMATION
  Report Type: Spontaneous
  Country: US (occurrence: US)
  Receive Date: 20190613
  Receipt Date: 20190912
  Transmission Date: 20191004
  Serious: No
  Sender: FDA-Public Use
  Company Number: US-PFIZER INC-2019252812

PATIENT
  Age: 77 Year
  Sex: Male

DRUGS (1)
  1. XELJANZ XR [Suspect]
     Active Substance: TOFACITINIB CITRATE
     Dosage: 11 MG, UNK

REACTIONS (3)
  - Pain [Unknown]
  - Therapeutic product effect incomplete [Unknown]
  - Mobility decreased [Unknown]
